FAERS Safety Report 5616332-5 (Version None)
Quarter: 2008Q1

REPORT INFORMATION
  Report Type: 
  Country: None (occurrence: None)
  Receive Date: 20080204
  Receipt Date: 20080121
  Transmission Date: 20080703
  Serious: No
  Sender: FDA-Public Use
  Company Number: 8029509

PATIENT
  Age: 8 Year
  Sex: Male
  Weight: 35.6 kg

DRUGS (2)
  1. METHYLPHENIDATE HCL [Suspect]
     Indication: ATTENTION DEFICIT/HYPERACTIVITY DISORDER
     Dosage: 30 MG /D
     Dates: start: 20061205
  2. RITALIN [Concomitant]

REACTIONS (3)
  - ANXIETY [None]
  - MALAISE [None]
  - TIC [None]
